FAERS Safety Report 5460112-0 (Version None)
Quarter: 2007Q3

REPORT INFORMATION
  Report Type: 
  Country: None (occurrence: None)
  Receive Date: 20070919
  Receipt Date: 20070802
  Transmission Date: 20080115
  Serious: No
  Sender: FDA-Public Use
  Company Number: US-ASTRAZENECA-2007UW12091

PATIENT
  Age: 19109 Day
  Sex: Female
  Weight: 74.5 kg

DRUGS (7)
  1. SEROQUEL [Suspect]
     Indication: SCHIZOPHRENIA
     Route: 048
     Dates: start: 20020901, end: 20060909
  2. SEROQUEL [Suspect]
     Indication: BIPOLAR DISORDER
     Route: 048
     Dates: start: 20020901, end: 20060909
  3. SEROQUEL [Suspect]
     Indication: DEPRESSION
     Route: 048
     Dates: start: 20020901, end: 20060909
  4. RISPERDAL [Concomitant]
     Indication: SCHIZOPHRENIA
     Dates: start: 20030608
  5. RISPERDAL [Concomitant]
     Indication: BIPOLAR DISORDER
     Dates: start: 20030608
  6. RISPERDAL [Concomitant]
     Indication: DEPRESSION
     Dates: start: 20030608
  7. ABILIFY [Concomitant]
     Route: 048
     Dates: start: 20030101, end: 20050101

REACTIONS (2)
  - DIABETES MELLITUS [None]
  - PERIPHERAL ARTERIAL OCCLUSIVE DISEASE [None]
